FAERS Safety Report 4470557-3 (Version None)
Quarter: 2004Q4

REPORT INFORMATION
  Report Type: 
  Country: None (occurrence: None)
  Receive Date: 20041011
  Receipt Date: 20040927
  Transmission Date: 20050328
  Serious: Yes (Hospitalization)
  Sender: FDA-Public Use
  Company Number: JP-JNJFOC-20041001528

PATIENT
  Sex: Male
  Weight: 45 kg

DRUGS (15)
  1. REMICADE [Suspect]
     Route: 042
  2. REMICADE [Suspect]
     Indication: RHEUMATOID ARTHRITIS
     Route: 042
  3. PREDONINE [Suspect]
     Indication: RHEUMATOID ARTHRITIS
     Route: 049
  4. RHEUMATREX [Concomitant]
     Route: 049
  5. RHEUMATREX [Concomitant]
     Indication: RHEUMATOID ARTHRITIS
     Route: 049
  6. INFREE [Concomitant]
     Indication: RHEUMATOID ARTHRITIS
     Route: 049
  7. SPLENDIL [Concomitant]
     Route: 049
  8. CYTOTEC [Concomitant]
     Route: 049
  9. MALFA [Concomitant]
     Route: 049
  10. MAGNESIUM OXIDE [Concomitant]
     Route: 049
  11. BENET [Concomitant]
     Route: 049
  12. ASPARA [Concomitant]
     Route: 049
  13. ASPARA [Concomitant]
     Route: 049
  14. ALFAROL [Concomitant]
     Route: 049
  15. RANITAC [Concomitant]
     Route: 049

REACTIONS (3)
  - DRUG INTERACTION [None]
  - GASTRIC CANCER [None]
  - SPINAL COMPRESSION FRACTURE [None]
